FAERS Safety Report 16987595 (Version 1)
Quarter: 2020Q3

REPORT INFORMATION
  Report Type: Spontaneous
  Country: GB (occurrence: CN)
  Receive Date: 20191104
  Receipt Date: 20191104
  Transmission Date: 20201104
  Serious: Yes (Other)
  Sender: FDA-Public Use
  Company Number: CN-ASTELLAS-2019US043312

PATIENT
  Age: 63 Year
  Sex: Female

DRUGS (4)
  1. ALECTINIB. [Suspect]
     Active Substance: ALECTINIB
     Dosage: UNK UNK, UNKNOWN FREQ.
     Route: 065
     Dates: start: 20181110
  2. ERLOTINIB [Suspect]
     Active Substance: ERLOTINIB
     Indication: METASTATIC NEOPLASM
     Dosage: UNK UNK, UNKNOWN FREQ.
     Route: 048
     Dates: start: 20180806
  3. ERLOTINIB [Suspect]
     Active Substance: ERLOTINIB
     Dosage: UNK UNK, UNKNOWN FREQ.
     Route: 048
     Dates: start: 20181110
  4. ALECTINIB. [Suspect]
     Active Substance: ALECTINIB
     Indication: METASTATIC NEOPLASM
     Dosage: UNK UNK, UNKNOWN FREQ.
     Route: 065
     Dates: start: 20180806

REACTIONS (3)
  - Deep vein thrombosis [Unknown]
  - Rash [Recovered/Resolved]
  - Arteriosclerosis [Unknown]
